FAERS Safety Report 7085961-7 (Version None)
Quarter: 2010Q4

REPORT INFORMATION
  Report Type: 
  Country: None (occurrence: None)
  Receive Date: 20101105
  Receipt Date: 20101026
  Transmission Date: 20110411
  Serious: Yes (Hospitalization)
  Sender: FDA-Public Use
  Company Number: JP-JNJFOC-20101100466

PATIENT
  Sex: Female
  Weight: 48 kg

DRUGS (11)
  1. REMICADE [Suspect]
     Indication: PUSTULAR PSORIASIS
     Route: 042
  2. REMICADE [Suspect]
     Route: 042
  3. REMICADE [Suspect]
     Route: 042
  4. REMICADE [Suspect]
     Route: 042
  5. REMICADE [Suspect]
     Route: 042
  6. TALION [Concomitant]
     Indication: PSORIASIS
     Route: 048
  7. CYCLOSPORINE [Concomitant]
     Indication: PUSTULAR PSORIASIS
     Route: 048
  8. FULMETA [Concomitant]
     Indication: PUSTULAR PSORIASIS
  9. OXAROL [Concomitant]
     Indication: PUSTULAR PSORIASIS
  10. BONALFA [Concomitant]
     Indication: PUSTULAR PSORIASIS
  11. TOPSYM [Concomitant]
     Indication: PUSTULAR PSORIASIS

REACTIONS (1)
  - PEMPHIGOID [None]
